FAERS Safety Report 12789491 (Version 4)
Quarter: 2016Q4

REPORT INFORMATION
  Report Type: Report from Study
  Country: None (occurrence: JP)
  Receive Date: 20160928
  Receipt Date: 20161117
  Transmission Date: 20170207
  Serious: Yes (Hospitalization)
  Sender: FDA-Public Use
  Company Number: JP-ABBVIE-16K-087-1739894-00

PATIENT
  Age: 32 Year
  Sex: Female
  Weight: 37 kg

DRUGS (5)
  1. ELENTAL [Concomitant]
     Active Substance: AMINO ACIDS\CARBOHYDRATES\MINERALS\SOYBEAN OIL\VITAMINS
     Indication: CROHN^S DISEASE
     Route: 048
     Dates: start: 20140526, end: 20150729
  2. HUMIRA [Suspect]
     Active Substance: ADALIMUMAB
     Route: 058
     Dates: start: 20130826
  3. HUMIRA [Suspect]
     Active Substance: ADALIMUMAB
     Indication: CROHN^S DISEASE
     Route: 058
     Dates: start: 20130729
  4. ELENTAL [Concomitant]
     Active Substance: AMINO ACIDS\CARBOHYDRATES\MINERALS\SOYBEAN OIL\VITAMINS
     Dates: start: 20150730
  5. MESALAZINE [Concomitant]
     Active Substance: MESALAMINE
     Indication: CROHN^S DISEASE
     Route: 048

REACTIONS (1)
  - Small intestinal stenosis [Recovering/Resolving]

NARRATIVE: CASE EVENT DATE: 20150227
